FAERS Safety Report 24951698 (Version 1)
Quarter: 2025Q1

REPORT INFORMATION
  Report Type: Spontaneous
  Country: SG (occurrence: SG)
  Receive Date: 20250210
  Receipt Date: 20250210
  Transmission Date: 20250409
  Serious: Yes (Hospitalization, Other)
  Sender: AMGEN
  Company Number: SG-AMGEN-SGPSP2025023410

PATIENT
  Age: 49 Year
  Sex: Female

DRUGS (14)
  1. FILGRASTIM [Suspect]
     Active Substance: FILGRASTIM
     Indication: Autologous haematopoietic stem cell transplant
     Route: 058
  2. CYCLOPHOSPHAMIDE [Suspect]
     Active Substance: CYCLOPHOSPHAMIDE
     Indication: Autologous haematopoietic stem cell transplant
     Route: 040
  3. MYCOPHENOLATE MOFETIL [Concomitant]
     Active Substance: MYCOPHENOLATE MOFETIL
     Indication: Product used for unknown indication
     Route: 048
     Dates: start: 202201, end: 202204
  4. BARICITINIB [Concomitant]
     Active Substance: BARICITINIB
     Indication: Vitiligo
     Route: 048
     Dates: start: 202203, end: 202204
  5. TACROLIMUS [Concomitant]
     Active Substance: TACROLIMUS
     Indication: Product used for unknown indication
     Route: 048
     Dates: start: 202204, end: 202204
  6. TOFACITINIB [Concomitant]
     Active Substance: TOFACITINIB
     Indication: Vitiligo
     Route: 065
  7. RITUXIMAB [Concomitant]
     Active Substance: RITUXIMAB
     Indication: Product used for unknown indication
     Route: 040
     Dates: start: 202201, end: 202204
  8. Immunoglobulin [Concomitant]
     Indication: Product used for unknown indication
     Route: 040
     Dates: start: 202201, end: 202205
  9. BORTEZOMIB [Concomitant]
     Active Substance: BORTEZOMIB
     Indication: Product used for unknown indication
     Route: 058
     Dates: start: 202204, end: 202206
  10. TRIAMCINOLONE ACETONIDE [Concomitant]
     Active Substance: TRIAMCINOLONE ACETONIDE
     Indication: Product used for unknown indication
     Route: 047
  11. PREDNISOLONE [Concomitant]
     Active Substance: PREDNISOLONE
     Indication: Product used for unknown indication
     Route: 048
     Dates: start: 202112, end: 202202
  12. TRIAMCINOLONE [Concomitant]
     Active Substance: TRIAMCINOLONE
     Indication: Product used for unknown indication
     Route: 047
     Dates: start: 202112
  13. RANIBIZUMAB [Concomitant]
     Active Substance: RANIBIZUMAB
     Indication: Product used for unknown indication
     Dates: start: 202202
  14. THYMOCYTE IMMUNE GLOBULIN NOS [Concomitant]
     Active Substance: THYMOCYTE IMMUNE GLOBULIN NOS
     Indication: Product used for unknown indication
     Route: 065

REACTIONS (7)
  - Febrile neutropenia [Unknown]
  - Cytomegalovirus viraemia [Recovered/Resolved]
  - Hypoaesthesia eye [Recovering/Resolving]
  - Thermoanaesthesia [Recovering/Resolving]
  - Vitiligo [Recovering/Resolving]
  - Alopecia areata [Recovering/Resolving]
  - Neurological symptom [Recovering/Resolving]
